FAERS Safety Report 23501932 (Version 4)
Quarter: 2024Q2

REPORT INFORMATION
  Report Type: Spontaneous
  Country: US (occurrence: US)
  Receive Date: 20240208
  Receipt Date: 20240605
  Transmission Date: 20240716
  Serious: Yes (Other)
  Sender: FDA-Public Use
  Company Number: US-PFIZER INC-PV202400017360

PATIENT
  Age: 83 Year
  Sex: Female
  Weight: 68.934 kg

DRUGS (3)
  1. VYNDAMAX [Suspect]
     Active Substance: TAFAMIDIS
     Indication: Acquired ATTR amyloidosis
     Dosage: 61 MG CAPSULE ONCE EVERY DAY
     Route: 048
     Dates: start: 20230804
  2. VYNDAMAX [Suspect]
     Active Substance: TAFAMIDIS
     Indication: Cardiac amyloidosis
     Dosage: 61 MG, 1X/DAY
     Dates: start: 202309, end: 20240320
  3. URSODIOL [Suspect]
     Active Substance: URSODIOL
     Indication: Cardiac amyloidosis
     Dosage: ONE TABLET BY MOUTH 3 TIMES DAILY
     Route: 048
     Dates: start: 202309, end: 202403

REACTIONS (3)
  - Epistaxis [Recovered/Resolved]
  - Oropharyngeal pain [Recovered/Resolved]
  - Hepatic enzyme increased [Recovering/Resolving]

NARRATIVE: CASE EVENT DATE: 20240201
